FAERS Safety Report 20887515 (Version 2)
Quarter: 2022Q3

REPORT INFORMATION
  Report Type: Report from Study
  Country: US (occurrence: US)
  Receive Date: 20220528
  Receipt Date: 20220716
  Transmission Date: 20221026
  Serious: Yes (Other)
  Sender: FDA-Public Use
  Company Number: US-NOVARTISPH-NVSC2022US119536

PATIENT
  Sex: Male

DRUGS (2)
  1. ENTRESTO [Suspect]
     Active Substance: SACUBITRIL\VALSARTAN
     Indication: Product used for unknown indication
     Dosage: 1 DOSAGE FORM, BID (49/51 MG)
     Route: 065
  2. ENTRESTO [Suspect]
     Active Substance: SACUBITRIL\VALSARTAN
     Dosage: UNK (INCREASED DOSE)
     Route: 065

REACTIONS (6)
  - Ejection fraction decreased [Recovering/Resolving]
  - Hypersensitivity [Unknown]
  - Throat clearing [Unknown]
  - Cough [Unknown]
  - Temperature intolerance [Unknown]
  - Product dose omission issue [Unknown]
